FAERS Safety Report 21285276 (Version 1)
Quarter: 2022Q3

REPORT INFORMATION
  Report Type: Spontaneous
  Country: US (occurrence: None)
  Receive Date: 20220901
  Receipt Date: 20220901
  Transmission Date: 20221027
  Serious: No
  Sender: FDA-Public Use
  Company Number: None

PATIENT
  Age: 60 Year
  Sex: Female

DRUGS (1)
  1. HUMIRA [Suspect]
     Active Substance: ADALIMUMAB
     Indication: Hidradenitis
     Route: 058
     Dates: start: 202112

REACTIONS (4)
  - Hidradenitis [None]
  - Condition aggravated [None]
  - Abscess [None]
  - Product dose omission in error [None]

NARRATIVE: CASE EVENT DATE: 20220901
